FAERS Safety Report 9441066 (Version 1)
Quarter: 2013Q3

REPORT INFORMATION
  Report Type: Spontaneous
  Country: CH (occurrence: CH)
  Receive Date: 20130805
  Receipt Date: 20130805
  Transmission Date: 20140515
  Serious: Yes (Hospitalization)
  Sender: FDA-Public Use
  Company Number: CH-BAYER-2013-092430

PATIENT
  Age: 77 Year
  Sex: Male

DRUGS (8)
  1. ASPIRIN CARDIO [Suspect]
     Dosage: 100 MG, QD
     Route: 048
  2. TICAGRELOR [Suspect]
     Dosage: 90 MG, BID
     Dates: start: 201208, end: 20130620
  3. CONCOR [Concomitant]
     Dosage: 1.25 MG, QD
     Route: 048
  4. TRIATEC [Concomitant]
     Dosage: 2.5 MG, QD
     Route: 048
  5. ZANIDIP [Concomitant]
     Dosage: 10 MG, QD
     Route: 048
  6. CRESTOR [Concomitant]
     Dosage: 20 MG, UNK
     Route: 048
  7. PANTOZOL [Concomitant]
     Dosage: 40 MG, QD
     Route: 048
  8. ISOKET [Concomitant]
     Dosage: 2 DF, PRN
     Route: 002

REACTIONS (5)
  - Orthostatic hypotension [Recovered/Resolved]
  - Dyspnoea [Recovering/Resolving]
  - Anaemia [Recovering/Resolving]
  - Gastrointestinal haemorrhage [Recovering/Resolving]
  - Melaena [Recovered/Resolved]
